FAERS Safety Report 6125665-8 (Version None)
Quarter: 2009Q1

REPORT INFORMATION
  Report Type: 
  Country: None (occurrence: None)
  Receive Date: 20090320
  Receipt Date: 20090313
  Transmission Date: 20090719
  Serious: Yes (Hospitalization)
  Sender: FDA-Public Use
  Company Number: US-BAYER-200910154BCC

PATIENT
  Age: 72 Year
  Sex: Male
  Weight: 91 kg

DRUGS (2)
  1. ALEVE [Suspect]
     Indication: JOINT SPRAIN
     Dosage: TOTAL DAILY DOSE: 2.2 G  UNIT DOSE: 220 MG
     Route: 048
     Dates: start: 19991201
  2. NORVASC [Concomitant]

REACTIONS (4)
  - FLUID RETENTION [None]
  - GAIT DISTURBANCE [None]
  - NAUSEA [None]
  - SWELLING [None]
